FAERS Safety Report 8824755 (Version 1)
Quarter: 2012Q4

REPORT INFORMATION
  Report Type: 
  Country: BR (occurrence: BR)
  Receive Date: 20121004
  Receipt Date: 20121004
  Transmission Date: 20130627
  Serious: Yes (Other)
  Sender: FDA-Public Use
  Company Number: BR-PFIZER INC-2012240437

PATIENT
  Age: 82 Year
  Sex: Male
  Weight: 79 kg

DRUGS (6)
  1. XALATAN [Suspect]
     Indication: GLAUCOMA
     Dosage: two drops in each eye twice daily
     Route: 047
     Dates: start: 20100416
  2. XALATAN [Suspect]
     Dosage: one drop twice a day
     Route: 047
     Dates: start: 20110701
  3. ATENOLOL [Concomitant]
     Indication: BLOOD PRESSURE
     Dosage: 25 mg, 1x/day
     Dates: start: 2008
  4. METFORMIN HYDROCHLORIDE [Concomitant]
     Indication: DIABETES MELLITUS
     Dosage: UNK
     Dates: start: 2009
  5. GLIMEPIRIDE [Concomitant]
     Indication: DIABETES MELLITUS
     Dosage: 2 mg, 1x/day
  6. ENALAPRIL MALEATE [Concomitant]
     Indication: BLOOD PRESSURE
     Dosage: 10 mg, 1x/day
     Dates: start: 2008

REACTIONS (3)
  - Cataract [Unknown]
  - Visual acuity reduced [Recovered/Resolved]
  - Overdose [Unknown]
